FAERS Safety Report 16627364 (Version 1)
Quarter: 2019Q3

REPORT INFORMATION
  Report Type: Spontaneous
  Country: ES (occurrence: ES)
  Receive Date: 20190724
  Receipt Date: 20190724
  Transmission Date: 20191004
  Serious: Yes (Other)
  Sender: FDA-Public Use
  Company Number: ES-JNJFOC-20190726489

PATIENT
  Age: 95 Year
  Sex: Male

DRUGS (1)
  1. RIVAROXABAN [Suspect]
     Active Substance: RIVAROXABAN
     Indication: ATRIAL FLUTTER
     Route: 048

REACTIONS (4)
  - Left ventricular dysfunction [Unknown]
  - Product use in unapproved indication [Unknown]
  - Atrial thrombosis [Unknown]
  - Off label use [Unknown]
